FAERS Safety Report 16023527 (Version 5)
Quarter: 2019Q3

REPORT INFORMATION
  Report Type: Report from Study
  Country: JP (occurrence: JP)
  Receive Date: 20190301
  Receipt Date: 20190719
  Transmission Date: 20191004
  Serious: Yes (Hospitalization, Other)
  Sender: FDA-Public Use
  Company Number: JP-BRISTOL-MYERS SQUIBB COMPANY-BMS-2019-019362

PATIENT
  Age: 41 Year
  Sex: Female
  Weight: 58.4 kg

DRUGS (2)
  1. NIVOLUMAB [Suspect]
     Active Substance: NIVOLUMAB
     Indication: MALIGNANT MELANOMA
     Dosage: 80 MILLIGRAM, Q3WK
     Route: 041
     Dates: start: 20180904, end: 20180925
  2. IPILIMUMAB [Suspect]
     Active Substance: IPILIMUMAB
     Indication: MALIGNANT MELANOMA
     Dosage: 3 MILLIGRAM/KILOGRAM, Q3WK
     Route: 041
     Dates: start: 20180904, end: 20180925

REACTIONS (3)
  - Pemphigoid [Recovered/Resolved]
  - Prescribed overdose [Unknown]
  - Skin disorder [Unknown]

NARRATIVE: CASE EVENT DATE: 20181002
